FAERS Safety Report 15986213 (Version 7)
Quarter: 2019Q3

REPORT INFORMATION
  Report Type: Report from Study
  Country: CA (occurrence: CA)
  Receive Date: 20190220
  Receipt Date: 20190731
  Transmission Date: 20191004
  Serious: Yes (Other)
  Sender: FDA-Public Use
  Company Number: PHHY2018CA148848

PATIENT
  Age: 52 Year
  Sex: Female

DRUGS (5)
  1. COSENTYX [Suspect]
     Active Substance: SECUKINUMAB
     Dosage: 300 MG, Q4W
     Route: 058
     Dates: start: 20190222, end: 2019
  2. COSENTYX [Suspect]
     Active Substance: SECUKINUMAB
     Indication: ANKYLOSING SPONDYLITIS
     Dosage: 300 MG, QW
     Route: 058
     Dates: start: 20181012
  3. COSENTYX [Suspect]
     Active Substance: SECUKINUMAB
     Dosage: UNK
     Route: 058
     Dates: start: 20181116, end: 20181116
  4. COSENTYX [Suspect]
     Active Substance: SECUKINUMAB
     Dosage: 300 MG, QMO
     Route: 058
     Dates: start: 20181102
  5. PIROXICAM. [Concomitant]
     Active Substance: PIROXICAM
     Indication: PRODUCT USED FOR UNKNOWN INDICATION
     Dosage: UNK
     Route: 065
     Dates: start: 2008

REACTIONS (20)
  - Musculoskeletal stiffness [Not Recovered/Not Resolved]
  - Diarrhoea [Unknown]
  - Colonic abscess [Unknown]
  - Pyrexia [Recovered/Resolved]
  - Drug ineffective [Unknown]
  - Chills [Unknown]
  - Malaise [Unknown]
  - Gait disturbance [Unknown]
  - Iritis [Unknown]
  - Mucous stools [Unknown]
  - Feeling cold [Not Recovered/Not Resolved]
  - Middle insomnia [Unknown]
  - Abdominal discomfort [Not Recovered/Not Resolved]
  - Ill-defined disorder [Unknown]
  - Mobility decreased [Unknown]
  - Abdominal pain lower [Not Recovered/Not Resolved]
  - Nausea [Not Recovered/Not Resolved]
  - Pain [Not Recovered/Not Resolved]
  - Diverticulitis [Unknown]
  - Ankylosing spondylitis [Unknown]

NARRATIVE: CASE EVENT DATE: 20181102
